FAERS Safety Report 14587649 (Version 1)
Quarter: 2018Q1

REPORT INFORMATION
  Report Type: Spontaneous
  Country: US (occurrence: US)
  Receive Date: 20180301
  Receipt Date: 20180301
  Transmission Date: 20180509
  Serious: No
  Sender: FDA-Public Use
  Company Number: US-BRACCO-014821

PATIENT

DRUGS (2)
  1. PHOSPHATE [Suspect]
     Active Substance: UNSPECIFIED INGREDIENT
     Indication: X-RAY
     Dosage: 50 MM
  2. ISOVUE 370 [Suspect]
     Active Substance: IOPAMIDOL
     Indication: X-RAY
     Dosage: 50%

REACTIONS (5)
  - Procedural pain [Recovered/Resolved]
  - Extravasation [Recovered/Resolved]
  - Neuralgia [Recovered/Resolved]
  - Product preparation error [Recovered/Resolved]
  - Drug administration error [Recovered/Resolved]
